FAERS Safety Report 5054175-4 (Version None)
Quarter: 2006Q3

REPORT INFORMATION
  Report Type: 
  Country: None (occurrence: None)
  Receive Date: 20060713
  Receipt Date: 20060629
  Transmission Date: 20061208
  Serious: Yes (Other)
  Sender: FDA-Public Use
  Company Number: 2006US001285

PATIENT

DRUGS (9)
  1. AMBISOME [Suspect]
  2. AMPICILLIN [Concomitant]
  3. PANTOZOL                    (PANTOPRAZOLE SODIUM) [Concomitant]
  4. DIPIRONA (METAMIZOLE) [Concomitant]
  5. ENOXAPARIN SODIUM [Concomitant]
  6. AMIODARONE HCL [Concomitant]
  7. MERONEM (MEROPENEM) [Concomitant]
  8. LASIX [Concomitant]
  9. ALPRAZOLAM [Concomitant]

REACTIONS (1)
  - ERYTHEMA MULTIFORME [None]
